FAERS Safety Report 14554093 (Version 1)
Quarter: 2018Q1

REPORT INFORMATION
  Report Type: Spontaneous
  Country: US (occurrence: US)
  Receive Date: 20180208
  Receipt Date: 20180208
  Transmission Date: 20180509
  Serious: Yes (Hospitalization)
  Sender: FDA-Public Use
  Company Number: None

PATIENT
  Age: 45 Year
  Sex: Male
  Weight: 82.7 kg

DRUGS (1)
  1. SULFAMETHOXAZOLE/TRIMETHOPRIM [Suspect]
     Active Substance: SULFAMETHOXAZOLE\TRIMETHOPRIM
     Indication: EPIDIDYMITIS
     Route: 048
     Dates: start: 20120830, end: 20120906

REACTIONS (2)
  - Tubulointerstitial nephritis [None]
  - Hyperkalaemia [None]

NARRATIVE: CASE EVENT DATE: 20120906
